FAERS Safety Report 10645982 (Version 1)
Quarter: 2014Q4

REPORT INFORMATION
  Report Type: Spontaneous
  Country: GB (occurrence: GB)
  Receive Date: 20141211
  Receipt Date: 20141211
  Transmission Date: 20150529
  Serious: Yes (Hospitalization)
  Sender: FDA-Public Use
  Company Number: GB-ACTAVIS-2014-26271

PATIENT
  Age: 91 Year
  Sex: Female

DRUGS (11)
  1. GABAPENTIN (UNKNOWN) [Suspect]
     Active Substance: GABAPENTIN
     Dosage: 500 MG, DAILY (100MG IN THE MORNING, 100MG AT LUNCH AND 300MG AT NIGHT)
     Route: 048
     Dates: start: 20141015, end: 20141021
  2. ADCAL D3 [Concomitant]
     Active Substance: CALCIUM CARBONATE\CHOLECALCIFEROL
     Indication: PRODUCT USED FOR UNKNOWN INDICATION
     Dosage: UNK
     Route: 065
  3. PARACETAMOL [Concomitant]
     Active Substance: ACETAMINOPHEN
     Indication: PRODUCT USED FOR UNKNOWN INDICATION
     Dosage: UNK
     Route: 065
  4. FLUCLOXACILLIN (UNKNOWN) [Suspect]
     Active Substance: FLUCLOXACILLIN
     Indication: INFECTED SKIN ULCER
     Dosage: 500 MG, QID
     Route: 048
     Dates: start: 20140929, end: 20141005
  5. FLUCLOXACILLIN (UNKNOWN) [Suspect]
     Active Substance: FLUCLOXACILLIN
     Dosage: 1 G, QID
     Route: 048
     Dates: start: 20141010, end: 20141017
  6. GABAPENTIN (UNKNOWN) [Suspect]
     Active Substance: GABAPENTIN
     Dosage: 300 MG, TID (300MG IN THE MORNING, AT LUNCH AND AT NIGHT)
     Route: 048
     Dates: start: 20141105, end: 20141106
  7. CARVEDILOL. [Concomitant]
     Active Substance: CARVEDILOL
     Indication: PRODUCT USED FOR UNKNOWN INDICATION
     Dosage: UNK
     Route: 065
  8. FUROSEMIDE. [Concomitant]
     Active Substance: FUROSEMIDE
     Indication: PRODUCT USED FOR UNKNOWN INDICATION
     Dosage: UNK
     Route: 065
  9. WARFARIN [Concomitant]
     Active Substance: WARFARIN
     Indication: PRODUCT USED FOR UNKNOWN INDICATION
     Dosage: UNK
     Route: 065
  10. GABAPENTIN (UNKNOWN) [Suspect]
     Active Substance: GABAPENTIN
     Indication: PAIN
     Dosage: 300 MG, QHS (ON ADMISSION: 300MG AT NIGHT)
     Route: 048
     Dates: end: 20141014
  11. GABAPENTIN (UNKNOWN) [Suspect]
     Active Substance: GABAPENTIN
     Dosage: 700 MG, DAILY (200MG IN THE MORNING, 200MG AT LUNCH AND 300MG AT NIGHT)
     Route: 048
     Dates: start: 20141022, end: 20141104

REACTIONS (2)
  - Cholecystitis [Unknown]
  - Liver function test abnormal [Not Recovered/Not Resolved]

NARRATIVE: CASE EVENT DATE: 20141105
